FAERS Safety Report 7919319-2 (Version None)
Quarter: 2011Q4

REPORT INFORMATION
  Report Type: 
  Country: None (occurrence: None)
  Receive Date: 20111116
  Receipt Date: 20111116
  Transmission Date: 20120403
  Serious: No
  Sender: FDA-Public Use
  Company Number: None

PATIENT
  Age: 67 Year
  Sex: Male

DRUGS (1)
  1. NEXAVAR [Suspect]
     Indication: NEOPLASM MALIGNANT
     Dosage: 400 MG BID PO
     Route: 048
     Dates: start: 20111015

REACTIONS (2)
  - DYSPNOEA EXERTIONAL [None]
  - EPISTAXIS [None]
